FAERS Safety Report 8813164 (Version 1)
Quarter: 2012Q4

REPORT INFORMATION
  Report Type: 
  Country: US (occurrence: US)
  Receive Date: 20120927
  Receipt Date: 20120927
  Transmission Date: 20130627
  Serious: No
  Sender: FDA-Public Use
  Company Number: US-AMGEN-USASP2012038002

PATIENT
  Sex: Female

DRUGS (2)
  1. PROLIA [Suspect]
     Indication: OSTEOPOROSIS POSTMENOPAUSAL
     Dosage: UNK
     Dates: start: 2011
  2. CITRACAL                           /00751520/ [Concomitant]

REACTIONS (2)
  - Upper-airway cough syndrome [Not Recovered/Not Resolved]
  - Dysphonia [Not Recovered/Not Resolved]
